FAERS Safety Report 7185151-3 (Version None)
Quarter: 2010Q4

REPORT INFORMATION
  Report Type: 
  Country: None (occurrence: None)
  Receive Date: 20101222
  Receipt Date: 20101213
  Transmission Date: 20110411
  Serious: Yes (Hospitalization)
  Sender: FDA-Public Use
  Company Number: US-JNJFOC-20101205441

PATIENT
  Sex: Female
  Weight: 101.15 kg

DRUGS (8)
  1. REMICADE [Suspect]
     Indication: PSORIASIS
     Route: 042
  2. REMICADE [Suspect]
     Indication: CROHN'S DISEASE
     Route: 042
  3. WARFARIN [Concomitant]
     Indication: THROMBOSIS
     Route: 048
  4. AZATHIOPRINE [Concomitant]
     Indication: CROHN'S DISEASE
     Route: 048
  5. BUMETANIDE [Concomitant]
     Indication: DIURETIC THERAPY
     Route: 048
  6. CYCLOBENZAPRINE [Concomitant]
     Indication: MUSCLE RELAXANT THERAPY
     Route: 048
  7. METHADONE [Concomitant]
     Indication: BACK PAIN
     Route: 048
  8. CALCIUM WITH VITAMIN D [Concomitant]
     Indication: VITAMIN SUPPLEMENTATION
     Route: 048

REACTIONS (9)
  - CONSTIPATION [None]
  - DYSPNOEA [None]
  - GASTROOESOPHAGEAL REFLUX DISEASE [None]
  - GASTROOESOPHAGEAL SPHINCTER INSUFFICIENCY [None]
  - HYPOAESTHESIA [None]
  - OEDEMA PERIPHERAL [None]
  - PRURITUS GENERALISED [None]
  - RASH PUSTULAR [None]
  - SENSATION OF FOREIGN BODY [None]
